FAERS Safety Report 21363156 (Version 1)
Quarter: 2022Q3

REPORT INFORMATION
  Report Type: Spontaneous
  Country: US (occurrence: None)
  Receive Date: 20220921
  Receipt Date: 20220921
  Transmission Date: 20221027
  Serious: Yes (Hospitalization)
  Sender: FDA-Public Use
  Company Number: None

PATIENT
  Sex: Female

DRUGS (15)
  1. SILDENAFIL [Suspect]
     Active Substance: SILDENAFIL
  2. ALBUTEROL AER HFA [Concomitant]
  3. ALLOPURINOL [Concomitant]
     Active Substance: ALLOPURINOL
  4. FLONASE ALGY SPR [Concomitant]
  5. FUROSEMID TAB [Concomitant]
  6. JANUVIA TAB [Concomitant]
  7. LEVOTHYROXIN TAB [Concomitant]
  8. LEVOTHYROXIN TAB [Concomitant]
  9. LIPITOR TAB [Concomitant]
  10. OMEPRAZOLE TAB [Concomitant]
  11. OPSUMIT TAB [Concomitant]
  12. PANTOPRAZOLE TAB [Concomitant]
  13. POT CL MICRO TAB [Concomitant]
  14. RESTASIS EMU [Concomitant]
  15. SILVER SULFA CRE [Concomitant]

REACTIONS (1)
  - Sepsis [None]
